FAERS Safety Report 19484001 (Version 1)
Quarter: 2021Q3

REPORT INFORMATION
  Report Type: Spontaneous
  Country: GB (occurrence: GB)
  Receive Date: 20210701
  Receipt Date: 20210701
  Transmission Date: 20211014
  Serious: Yes (Other)
  Sender: FDA-Public Use
  Company Number: GB-MYLANLABS-2021M1038247

PATIENT
  Age: 19 Year
  Sex: Female
  Weight: 44 kg

DRUGS (1)
  1. FLUOXETINE [Suspect]
     Active Substance: FLUOXETINE HYDROCHLORIDE
     Indication: DEPRESSION
     Dosage: UNK
     Route: 048
     Dates: start: 2018, end: 2019

REACTIONS (2)
  - Photophobia [Recovered/Resolved with Sequelae]
  - Drug ineffective [Unknown]

NARRATIVE: CASE EVENT DATE: 2018
